FAERS Safety Report 6540889-3 (Version None)
Quarter: 2010Q1

REPORT INFORMATION
  Report Type: 
  Country: None (occurrence: None)
  Receive Date: 20100118
  Receipt Date: 20100113
  Transmission Date: 20100710
  Serious: Yes (Death, Other)
  Sender: FDA-Public Use
  Company Number: PHEH2009US18368

PATIENT
  Sex: Female
  Weight: 74.376 kg

DRUGS (4)
  1. EXJADE [Suspect]
     Dosage: 1500 MG, QD
     Route: 048
     Dates: start: 20090921
  2. FOLIC ACID [Concomitant]
     Dosage: 1 MG, UNK
  3. LISINOPRIL [Concomitant]
     Indication: BLOOD PRESSURE INCREASED
     Dosage: 1 TAB DAILY
  4. LORTAB [Concomitant]
     Indication: PAIN
     Dosage: 75 MG, Q6H PRN

REACTIONS (2)
  - CHEST PAIN [None]
  - DEATH [None]
